FAERS Safety Report 18989876 (Version 1)
Quarter: 2021Q1

REPORT INFORMATION
  Report Type: Report from Study
  Country: IT (occurrence: IT)
  Receive Date: 20210310
  Receipt Date: 20210310
  Transmission Date: 20210420
  Serious: Yes (Death, Other)
  Sender: FDA-Public Use
  Company Number: IT-UCBSA-2021009934

PATIENT
  Sex: Female

DRUGS (13)
  1. LACOSAMIDE. [Suspect]
     Active Substance: LACOSAMIDE
     Indication: EPILEPSY
     Dosage: UNK
  2. TIOPENTAL [THIOPENTAL SODIUM] [Suspect]
     Active Substance: THIOPENTAL SODIUM
     Indication: SEIZURE
     Dosage: UNK
  3. MIDAZOLAM. [Suspect]
     Active Substance: MIDAZOLAM
     Indication: SEIZURE
     Dosage: UNK
  4. ISOFLURANE. [Suspect]
     Active Substance: ISOFLURANE
     Indication: SEIZURE
     Dosage: UNK
  5. PROPOFOL. [Suspect]
     Active Substance: PROPOFOL
     Indication: SEIZURE
     Dosage: UNK
  6. LACOSAMIDE. [Suspect]
     Active Substance: LACOSAMIDE
     Indication: CATATONIA
  7. KETAMINE [Suspect]
     Active Substance: KETAMINE
     Indication: SEIZURE
     Dosage: UNK
  8. LORAZEPAM. [Suspect]
     Active Substance: LORAZEPAM
     Indication: SEIZURE
     Dosage: UNK
  9. LEVETIRACETAM. [Suspect]
     Active Substance: LEVETIRACETAM
     Indication: CATATONIA
  10. CORTISONE [Concomitant]
     Active Substance: CORTISONE
     Indication: PRODUCT USED FOR UNKNOWN INDICATION
     Dosage: UNK
  11. LEVETIRACETAM. [Suspect]
     Active Substance: LEVETIRACETAM
     Indication: EPILEPSY
     Dosage: UNK
  12. PERAMPANEL [Suspect]
     Active Substance: PERAMPANEL
     Indication: SEIZURE
     Dosage: UNK
  13. VALPROIC ACID. [Suspect]
     Active Substance: VALPROIC ACID
     Indication: SEIZURE
     Dosage: UNK

REACTIONS (7)
  - Condition aggravated [Unknown]
  - Product use in unapproved indication [Unknown]
  - Sepsis [Unknown]
  - Status epilepticus [Unknown]
  - Seizure [Unknown]
  - Multiple-drug resistance [Unknown]
  - Organ failure [Fatal]
